FAERS Safety Report 11055416 (Version 1)
Quarter: 2015Q2

REPORT INFORMATION
  Report Type: Spontaneous
  Country: US (occurrence: None)
  Receive Date: 20150421
  Receipt Date: 20150421
  Transmission Date: 20150821
  Serious: Yes (Disabling)
  Sender: FDA-Public Use
  Company Number: None

PATIENT
  Age: 88 Year
  Sex: Female
  Weight: 79.38 kg

DRUGS (26)
  1. CELEXA [Suspect]
     Active Substance: CITALOPRAM HYDROBROMIDE
     Indication: DEPRESSION
     Dosage: 1 PILL AM
     Route: 048
     Dates: start: 20140520, end: 20140606
  2. OXYCODONE [Concomitant]
     Active Substance: OXYCODONE
  3. DIAZEPAM. [Concomitant]
     Active Substance: DIAZEPAM
  4. LOSARTIN [Concomitant]
     Active Substance: LOSARTAN
  5. ALBUTEROL. [Concomitant]
     Active Substance: ALBUTEROL
  6. TRAMADEL [Concomitant]
  7. NIRBUBG (GUALFENESIN) [Concomitant]
  8. FUROSEMIDE. [Concomitant]
     Active Substance: FUROSEMIDE
  9. BUDESONIDE. [Concomitant]
     Active Substance: BUDESONIDE
  10. PERFORMOMIST [Concomitant]
  11. LORAZAPAM [Concomitant]
     Active Substance: LORAZEPAM
  12. MONTALUPOST [Concomitant]
  13. LATOMIN D [Concomitant]
  14. VITAMIN D [Concomitant]
     Active Substance: CHOLECALCIFEROL
  15. COENZYME Q10 [Concomitant]
     Active Substance: UBIDECARENONE
  16. NEBULIZER [Concomitant]
     Active Substance: UNSPECIFIED INGREDIENT
  17. METROPOLOL [Concomitant]
     Active Substance: METOPROLOL
  18. NYSTATIN. [Concomitant]
     Active Substance: NYSTATIN
  19. OXYCONTIN [Concomitant]
     Active Substance: OXYCODONE HYDROCHLORIDE
  20. GABAPENTIN. [Concomitant]
     Active Substance: GABAPENTIN
  21. LIDPAERM [Concomitant]
  22. THIRSLAX [Concomitant]
  23. OMEGA FISH OIL [Concomitant]
     Active Substance: FISH OIL\OMEGA-3 FATTY ACIDS
  24. COLACE [Concomitant]
     Active Substance: DOCUSATE SODIUM
  25. PROAIR HFA [Concomitant]
     Active Substance: ALBUTEROL SULFATE
  26. LATULOSE [Concomitant]

REACTIONS (3)
  - Dizziness [None]
  - Diplopia [None]
  - Deafness [None]
